APPROVED DRUG PRODUCT: CETIRIZINE HYDROCHLORIDE ALLERGY
Active Ingredient: CETIRIZINE HYDROCHLORIDE
Strength: 10MG
Dosage Form/Route: TABLET;ORAL
Application: A078862 | Product #002
Applicant: ORBION PHARMACEUTICALS PRIVATE LTD
Approved: Feb 19, 2009 | RLD: No | RS: No | Type: OTC